FAERS Safety Report 5267353-6 (Version None)
Quarter: 2007Q1

REPORT INFORMATION
  Report Type: 
  Country: None (occurrence: None)
  Receive Date: 20070316
  Receipt Date: 20070313
  Transmission Date: 20070707
  Serious: Yes (Other)
  Sender: FDA-Public Use
  Company Number: CA-MERCK-0703CAN00130

PATIENT

DRUGS (2)
  1. ZETIA [Suspect]
     Route: 048
  2. ATORVASTATIN CALCIUM [Concomitant]
     Route: 065

REACTIONS (2)
  - AORTIC ANEURYSM [None]
  - HIGH DENSITY LIPOPROTEIN DECREASED [None]
